FAERS Safety Report 20461153 (Version 2)
Quarter: 2022Q2

REPORT INFORMATION
  Report Type: Report from Study
  Country: JP (occurrence: JP)
  Receive Date: 20220211
  Receipt Date: 20220418
  Transmission Date: 20220721
  Serious: Yes (Death, Other)
  Sender: FDA-Public Use
  Company Number: JP-MSD-M2022-01076

PATIENT
  Age: 80 Year
  Sex: Female
  Weight: 60 kg

DRUGS (1)
  1. CILASTATIN\IMIPENEM\RELEBACTAM MONOHYDRATE [Suspect]
     Active Substance: CILASTATIN\IMIPENEM\RELEBACTAM MONOHYDRATE
     Indication: Pneumonia
     Dosage: 0.75 GRAM, QID
     Route: 041
     Dates: start: 20220115, end: 20220121

REACTIONS (2)
  - Death [Fatal]
  - Blood sodium increased [Unknown]

NARRATIVE: CASE EVENT DATE: 20220101
